FAERS Safety Report 24657570 (Version 1)
Quarter: 2024Q4

REPORT INFORMATION
  Report Type: Report from Study
  Country: US (occurrence: US)
  Receive Date: 20241125
  Receipt Date: 20241125
  Transmission Date: 20250115
  Serious: Yes (Hospitalization)
  Sender: UCB
  Company Number: US-UCBSA-2023026487

PATIENT
  Age: 6 Year
  Sex: Female
  Weight: 22.9 kg

DRUGS (2)
  1. FINTEPLA [Suspect]
     Active Substance: FENFLURAMINE
     Indication: Severe myoclonic epilepsy of infancy
     Dosage: 3.6 MILLILITER, 2X/DAY (BID)
     Dates: start: 20200309
  2. FINTEPLA [Suspect]
     Active Substance: FENFLURAMINE
     Dosage: 0.72 MILLIGRAM/KILOGRAM/DAY (19.84MG/DAY)
     Dates: start: 20210120

REACTIONS (1)
  - Seizure [Recovered/Resolved]

NARRATIVE: CASE EVENT DATE: 20230509
